FAERS Safety Report 17115919 (Version 14)
Quarter: 2024Q1

REPORT INFORMATION
  Report Type: Spontaneous
  Country: US (occurrence: US)
  Receive Date: 20191205
  Receipt Date: 20240207
  Transmission Date: 20240410
  Serious: No
  Sender: FDA-Public Use
  Company Number: US-PFIZER INC-2019523159

PATIENT
  Age: 72 Year
  Sex: Female
  Weight: 97 kg

DRUGS (3)
  1. IBRANCE [Suspect]
     Active Substance: PALBOCICLIB
     Indication: Breast cancer metastatic
     Dosage: 125 MG, CYCLIC (21 DAYS ON AND 7 DAYS OFF)
     Route: 048
     Dates: start: 201912
  2. IBRANCE [Suspect]
     Active Substance: PALBOCICLIB
     Dosage: 125 MG
  3. LETROZOLE [Concomitant]
     Active Substance: LETROZOLE
     Dosage: 2.5 UNK
     Dates: start: 201912

REACTIONS (14)
  - Product dose omission in error [Unknown]
  - Neoplasm progression [Recovering/Resolving]
  - Cough [Not Recovered/Not Resolved]
  - Alopecia [Unknown]
  - Decreased appetite [Unknown]
  - Taste disorder [Unknown]
  - Abdominal discomfort [Unknown]
  - Fatigue [Unknown]
  - Ageusia [Unknown]
  - Onychoclasis [Unknown]
  - Feeling abnormal [Recovering/Resolving]
  - Frustration tolerance decreased [Unknown]
  - Illness [Unknown]
  - Arthralgia [Unknown]
